FAERS Safety Report 8315571-2 (Version None)
Quarter: 2012Q2

REPORT INFORMATION
  Report Type: 
  Country: None (occurrence: None)
  Receive Date: 20120426
  Receipt Date: 20120417
  Transmission Date: 20120825
  Serious: Yes (Other)
  Sender: FDA-Public Use
  Company Number: US-ABBOTT-12P-163-0926756-00

PATIENT
  Age: 59 Year
  Sex: Male

DRUGS (1)
  1. HUMIRA [Suspect]
     Indication: CROHN'S DISEASE
     Dates: start: 20100101

REACTIONS (6)
  - DECREASED APPETITE [None]
  - DIARRHOEA [None]
  - INTESTINAL STENOSIS [None]
  - VISION BLURRED [None]
  - GASTROINTESTINAL INFECTION [None]
  - FATIGUE [None]
